FAERS Safety Report 14184520 (Version 1)
Quarter: 2017Q4

REPORT INFORMATION
  Report Type: Spontaneous
  Country: US (occurrence: US)
  Receive Date: 20171113
  Receipt Date: 20171113
  Transmission Date: 20180321
  Serious: Yes (Other)
  Sender: FDA-Public Use
  Company Number: US-MYLANLABS-2017M1071976

PATIENT
  Age: 53 Year
  Sex: Female

DRUGS (2)
  1. PAMIDRONATE DISODIUM INJECTION [Suspect]
     Active Substance: PAMIDRONATE DISODIUM
     Indication: HYPERCALCAEMIA OF MALIGNANCY
     Dosage: UNK
     Route: 065
  2. CALCITONIN SALMON MYLAN [Suspect]
     Active Substance: CALCITONIN SALMON
     Indication: HYPERCALCAEMIA OF MALIGNANCY
     Dosage: UNK
     Route: 065

REACTIONS (1)
  - Hypercalcaemia of malignancy [Recovering/Resolving]
